FAERS Safety Report 9016836 (Version 1)
Quarter: 2013Q1

REPORT INFORMATION
  Report Type: Spontaneous
  Country: GB (occurrence: GB)
  Receive Date: 20130117
  Receipt Date: 20130117
  Transmission Date: 20140127
  Serious: Yes (Other)
  Sender: FDA-Public Use
  Company Number: GB-JNJFOC-20130105259

PATIENT
  Age: 52 Year
  Sex: Female
  Weight: 80 kg

DRUGS (4)
  1. XARELTO [Suspect]
     Indication: THROMBOSIS PROPHYLAXIS
     Route: 048
  2. XARELTO [Suspect]
     Indication: THROMBOSIS PROPHYLAXIS
     Route: 048
     Dates: start: 20120804
  3. PERINDOPRIL [Concomitant]
     Indication: HYPERTENSION
     Route: 065
  4. PHENINDIONE [Concomitant]
     Indication: ANTICOAGULANT THERAPY
     Route: 065
     Dates: start: 1989

REACTIONS (3)
  - Arthralgia [Recovered/Resolved]
  - Palpitations [Recovered/Resolved]
  - Nausea [Recovered/Resolved]
